FAERS Safety Report 8021985 (Version 3)
Quarter: 2017Q3

REPORT INFORMATION
  Report Type: Spontaneous
  Country: CA (occurrence: CA)
  Receive Date: 20110705
  Receipt Date: 20170706
  Transmission Date: 20171128
  Serious: Yes (Other)
  Sender: FDA-Public Use
  Company Number: CA-PFIZER INC-2011148881

PATIENT
  Age: 67 Year
  Sex: Female

DRUGS (19)
  1. PREGABALIN. [Suspect]
     Active Substance: PREGABALIN
     Indication: JOINT ARTHROPLASTY
     Dosage: 75 MG, UNK (2 H BEFORE SURGERY)
     Route: 048
  2. MORPHINE SULFATE. [Suspect]
     Active Substance: MORPHINE SULFATE
     Indication: SPINAL ANAESTHESIA
     Dosage: 200 UG, UNK
     Route: 037
  3. BUPIVACAINE. [Concomitant]
     Active Substance: BUPIVACAINE
     Indication: SPINAL ANAESTHESIA
     Dosage: 12.5 MG, UNK
  4. PREGABALIN. [Suspect]
     Active Substance: PREGABALIN
     Dosage: 50 MG, 3X/DAY
  5. PANTOPRAZOLE [Concomitant]
     Active Substance: PANTOPRAZOLE
     Dosage: UNK
  6. FENTANYL. [Concomitant]
     Active Substance: FENTANYL
     Indication: SPINAL ANAESTHESIA
     Dosage: 15 UG, UNK
  7. SALBUTAMOL [Concomitant]
     Active Substance: ALBUTEROL
     Dosage: UNK
     Route: 055
  8. IRBESARTAN. [Concomitant]
     Active Substance: IRBESARTAN
     Dosage: UNK
  9. IBUPROFEN. [Concomitant]
     Active Substance: IBUPROFEN
     Indication: ARTHRALGIA
     Dosage: 400 MG, AS NEEDED
  10. ACETAMINOPHEN. [Concomitant]
     Active Substance: ACETAMINOPHEN
     Dosage: 975 MG, UNK (2 H BEFORE SURGERY)
     Route: 048
  11. PROPOFOL. [Concomitant]
     Active Substance: PROPOFOL
     Dosage: UNK, (LOW- DOSE PROPOFOL INFUSION OF 25 ?G/KG/MIN TO 50 ?G/KG/MIN)
  12. HYDROMORPHONE [Concomitant]
     Active Substance: HYDROMORPHONE
     Indication: ANALGESIC THERAPY
     Dosage: UNK, (BOLUS 0.2 MG, BASAL INFUSION 0 MG/H, LOCKOUT INTERVAL 6 MIN AND 1 H LIMIT 1.4 MG)
     Route: 040
  13. FLUTICASONE. [Concomitant]
     Active Substance: FLUTICASONE
     Dosage: UNK
     Route: 055
  14. DILTIAZEM. [Concomitant]
     Active Substance: DILTIAZEM
     Dosage: UNK
  15. CELECOXIB. [Concomitant]
     Active Substance: CELECOXIB
     Dosage: 400 MG, UNK (2 H BEFORE SURGERY)
     Route: 048
  16. CITALOPRAM [Concomitant]
     Active Substance: CITALOPRAM HYDROBROMIDE
     Dosage: UNK
  17. OXYCODONE [Concomitant]
     Active Substance: OXYCODONE
     Indication: ARTHRALGIA
     Dosage: UNK, AS NEEDED, (5 MG TO 10 MG)
  18. ACETAMINOPHEN. [Concomitant]
     Active Substance: ACETAMINOPHEN
     Dosage: 650 MG, EVERY 4 HRS
  19. CELECOXIB. [Concomitant]
     Active Substance: CELECOXIB
     Dosage: 200 MG, 2X/DAY

REACTIONS (2)
  - Respiratory depression [Recovered/Resolved]
  - Product use in unapproved indication [Unknown]
